FAERS Safety Report 13802151 (Version 1)
Quarter: 2017Q3

REPORT INFORMATION
  Report Type: Spontaneous
  Country: US (occurrence: US)
  Receive Date: 20170727
  Receipt Date: 20170727
  Transmission Date: 20171127
  Serious: Yes (Other)
  Sender: FDA-Public Use
  Company Number: None

PATIENT
  Age: 32 Year
  Sex: Male
  Weight: 90 kg

DRUGS (1)
  1. BUPRENORPHINE NALOXONE [Suspect]
     Active Substance: BUPRENORPHINE\NALOXONE
     Indication: DRUG DEPENDENCE
     Route: 060
     Dates: start: 20170509, end: 20170725

REACTIONS (6)
  - Dry skin [None]
  - Tongue discomfort [None]
  - Hypersensitivity [None]
  - Acne [None]
  - Therapy change [None]
  - Dyspnoea [None]

NARRATIVE: CASE EVENT DATE: 20170725
